FAERS Safety Report 14418660 (Version 1)
Quarter: 2018Q1

REPORT INFORMATION
  Report Type: Spontaneous
  Country: US (occurrence: US)
  Receive Date: 20180122
  Receipt Date: 20180122
  Transmission Date: 20180509
  Serious: No
  Sender: FDA-Public Use
  Company Number: US-TEVA-764703ACC

PATIENT
  Sex: Male
  Weight: 83.99 kg

DRUGS (4)
  1. VITAMIN E [Concomitant]
     Active Substance: .ALPHA.-TOCOPHEROL
  2. FISH OIL [Concomitant]
     Active Substance: FISH OIL
  3. SILDENAFIL. [Suspect]
     Active Substance: SILDENAFIL
     Indication: ERECTILE DYSFUNCTION
     Dosage: AS NEEDED
     Route: 048
  4. BIOTIN [Concomitant]
     Active Substance: BIOTIN

REACTIONS (1)
  - Drug ineffective [Unknown]
